FAERS Safety Report 10057148 (Version 2)
Quarter: 2014Q2

REPORT INFORMATION
  Report Type: Spontaneous
  Country: US (occurrence: US)
  Receive Date: 20140403
  Receipt Date: 20140417
  Transmission Date: 20141212
  Serious: Yes (Hospitalization)
  Sender: FDA-Public Use
  Company Number: US-BAYER-2014-046310

PATIENT
  Sex: Male

DRUGS (22)
  1. BAYER ASPIRIN REGIMEN ADULT LOW STRENGTH [Suspect]
     Route: 048
  2. SUNITINIB [Suspect]
     Dosage: 25 MG, UNK
     Route: 048
     Dates: start: 20130927, end: 20131118
  3. BENICAR [Suspect]
     Dosage: 40 MG, BID
     Route: 048
  4. ABIRATERONE ACETATE [Suspect]
     Dosage: 1000 MG, DAILY
     Route: 048
     Dates: start: 20120208, end: 20131118
  5. DASATINIB [Suspect]
     Dosage: DAILY DOSE 100 MG
     Route: 048
     Dates: start: 20130212, end: 20130827
  6. EFEXOR [Concomitant]
     Dosage: 150 MG, QD
  7. LIPITOR [Concomitant]
     Dosage: 40 MG, QD
  8. NIFEDIPINE ER [Concomitant]
     Dosage: 60 MG, QD
  9. CALCIUM PANTOTHENATE [Concomitant]
     Dosage: 1 DF, QD
  10. NICOTINAMIDE [Concomitant]
     Dosage: 1 DF, QD
  11. PYRIDOXIN TOHO [PYRIDOXINE HYDROCHLORIDE] [Concomitant]
     Dosage: 1 DF, QD
  12. RIBOFLAVIN [Concomitant]
     Dosage: 1 DF, QD
  13. THIAMINE HYDROCHLORIDE [Concomitant]
     Dosage: 1 DF, QD
  14. CARVEDILOL [Concomitant]
     Dosage: 12.5 MG, BID
  15. FISH OIL [Concomitant]
     Dosage: 2000 MG, QD
  16. LUPRON [Concomitant]
     Dosage: 22.5 MG, Q3MON
     Route: 030
  17. PLAVIX [Concomitant]
     Dosage: 75 MG, QD
  18. PROVIGIL [Concomitant]
     Dosage: 100 MG, QD
  19. VITAMIN C [Concomitant]
     Dosage: 500 MG, QD
  20. PREDNISONE [Concomitant]
     Dosage: 5 MG, BID
  21. VITAMIN D [Concomitant]
     Dosage: 400 IU, UNK
  22. VITAMIN B COMPLEX [Concomitant]

REACTIONS (5)
  - Nausea [None]
  - Mallory-Weiss syndrome [None]
  - Vomiting [None]
  - Haematemesis [None]
  - Haematochezia [None]
